FAERS Safety Report 6335985-X (Version None)
Quarter: 2009Q3

REPORT INFORMATION
  Report Type: 
  Country: None (occurrence: None)
  Receive Date: 20090901
  Receipt Date: 20070814
  Transmission Date: 20100115
  Serious: Yes (Other)
  Sender: FDA-Public Use
  Company Number: US-ASTRAZENECA-2007UW12282

PATIENT
  Age: 12855 Day
  Sex: Female
  Weight: 118.8 kg

DRUGS (16)
  1. SEROQUEL [Suspect]
     Indication: DEPRESSION
     Route: 048
     Dates: start: 19970101, end: 20030301
  2. SEROQUEL [Suspect]
     Indication: INSOMNIA
     Route: 048
     Dates: start: 19970101, end: 20030301
  3. SEROQUEL [Suspect]
     Route: 048
     Dates: start: 20051109
  4. SEROQUEL [Suspect]
     Route: 048
     Dates: start: 20051109
  5. NOVOLIN R [Concomitant]
     Dosage: 45 UNITS 70/30 DAILY AM, 45 UNITS DAILY PM, 54 UNITS AM, 48 UNITS DAILY PM.
     Dates: start: 20070126
  6. ELAVIL [Concomitant]
     Dates: start: 20070627
  7. PROZAC [Concomitant]
  8. VICODIN [Concomitant]
     Dosage: 5/500 THREE TIMES A DAY
     Dates: start: 20070517
  9. MEVACOR [Concomitant]
     Dates: start: 20070517
  10. ASPIRIN [Concomitant]
     Dates: start: 20070529
  11. METFORMIN HCL [Concomitant]
     Dates: start: 20060130
  12. LISINOPRIL [Concomitant]
     Dates: start: 20060130
  13. PLETAL [Concomitant]
     Dates: start: 20070720
  14. SIMVASTATIN [Concomitant]
     Indication: BLOOD CHOLESTEROL
  15. VERAPAMIL [Concomitant]
     Indication: HYPERTENSION
     Dosage: TWO TIMES A DAY
     Dates: start: 20070119
  16. PLAVIX [Concomitant]
     Dates: start: 20070222

REACTIONS (7)
  - DIABETES MELLITUS INADEQUATE CONTROL [None]
  - DIABETIC GASTROPARESIS [None]
  - DIABETIC NEUROPATHY [None]
  - HYPOGLYCAEMIA [None]
  - PERIPHERAL VASCULAR DISORDER [None]
  - TYPE 1 DIABETES MELLITUS [None]
  - TYPE 2 DIABETES MELLITUS [None]
